FAERS Safety Report 5963821-X (Version None)
Quarter: 2008Q4

REPORT INFORMATION
  Report Type: 
  Country: None (occurrence: None)
  Receive Date: 20081124
  Receipt Date: 20081120
  Transmission Date: 20090506
  Serious: Yes (Hospitalization)
  Sender: FDA-Public Use
  Company Number: IE-WYE-G02384308

PATIENT
  Sex: Female
  Weight: 46.4 kg

DRUGS (12)
  1. EFFEXOR [Suspect]
     Dosage: 75MG, FREQUENCY UNKNOWN
     Route: 048
     Dates: start: 20071127
  2. SIMVASTATIN [Concomitant]
     Route: 048
  3. RABEPRAZOLE SODIUM [Concomitant]
     Route: 048
  4. ZOLPIDEM TARTRATE [Concomitant]
     Route: 048
  5. SERETIDE [Concomitant]
     Route: 055
     Dates: start: 20070101
  6. EFFEXOR XR [Concomitant]
     Route: 048
     Dates: start: 20050101
  7. ELTROXIN [Concomitant]
     Route: 048
     Dates: start: 20050101
  8. LAMICTAL [Concomitant]
     Route: 048
     Dates: start: 20080701
  9. XANAX [Concomitant]
     Route: 048
  10. SPIRIVA [Concomitant]
     Route: 055
     Dates: start: 20070101
  11. EVISTA [Concomitant]
     Route: 048
  12. FRUMIL [Concomitant]
     Route: 048
     Dates: start: 20050101

REACTIONS (1)
  - CONGESTIVE CARDIOMYOPATHY [None]
